FAERS Safety Report 7931555 (Version 3)
Quarter: 2013Q3

REPORT INFORMATION
  Report Type: Spontaneous
  Country: BR (occurrence: BR)
  Receive Date: 20110505
  Receipt Date: 20130908
  Transmission Date: 20140515
  Serious: Yes (Other)
  Sender: FDA-Public Use
  Company Number: BR-US-EMD SERONO, INC.-7057716

PATIENT
  Age: 43 Year
  Sex: Female

DRUGS (8)
  1. REBIF [Suspect]
     Indication: RELAPSING-REMITTING MULTIPLE SCLEROSIS
     Dates: start: 200911
  2. OMEPRAZOL                          /00661201/ [Concomitant]
     Indication: PROPHYLAXIS
  3. SIFROL [Concomitant]
     Indication: PRODUCT USED FOR UNKNOWN INDICATION
  4. SERTRALINE HYDROCHLORIDE [Concomitant]
     Indication: DEPRESSION
  5. RIVOTRIL [Concomitant]
     Indication: DEPRESSION
  6. IBUPROFEN [Concomitant]
     Indication: PRODUCT USED FOR UNKNOWN INDICATION
  7. PARACETAMOL [Concomitant]
     Indication: PRODUCT USED FOR UNKNOWN INDICATION
  8. STABIL                             /00013301/ [Concomitant]
     Indication: DEPRESSION

REACTIONS (2)
  - Helicobacter gastritis [Not Recovered/Not Resolved]
  - Vitamin B12 deficiency [Unknown]
